FAERS Safety Report 4372052-9 (Version None)
Quarter: 2004Q2

REPORT INFORMATION
  Report Type: 
  Country: None (occurrence: None)
  Receive Date: 20040602
  Receipt Date: 20040519
  Transmission Date: 20050107
  Serious: Yes (Hospitalization)
  Sender: FDA-Public Use
  Company Number: FABR-10603

PATIENT
  Age: 39 Year
  Sex: Male
  Weight: 70 kg

DRUGS (8)
  1. FABRAZYME [Suspect]
     Indication: FABRY'S DISEASE
     Dosage: 70 MG Q2WKS IV
     Route: 042
     Dates: start: 20010716
  2. CALCITRIOL [Concomitant]
  3. DILTIAZEM [Concomitant]
  4. CARBAMAZEPINE [Concomitant]
  5. PANTOPRAZOLE [Concomitant]
  6. SERETIDE [Concomitant]
  7. AMPHOTERICIN B [Concomitant]
  8. ACETAMINOPHEN [Concomitant]

REACTIONS (1)
  - RENAL TRANSPLANT [None]
